FAERS Safety Report 24119465 (Version 1)
Quarter: 2024Q3

REPORT INFORMATION
  Report Type: Spontaneous
  Country: FR (occurrence: FR)
  Receive Date: 20240722
  Receipt Date: 20240722
  Transmission Date: 20241017
  Serious: Yes (Death)
  Sender: NOVARTIS
  Company Number: None

PATIENT
  Age: 67 Year
  Sex: Male
  Weight: 73 kg

DRUGS (1)
  1. PLUVICTO [Suspect]
     Active Substance: LUTETIUM LU-177 VIPIVOTIDE TETRAXETAN
     Indication: Prostate cancer
     Dosage: 7400 MBQ
     Route: 042
     Dates: start: 20240221, end: 20240403

REACTIONS (2)
  - Thrombocytopenia [Fatal]
  - Cerebral haematoma [Fatal]

NARRATIVE: CASE EVENT DATE: 20240530
